FAERS Safety Report 9129198 (Version 1)
Quarter: 2013Q1

REPORT INFORMATION
  Report Type: Other
  Country: US (occurrence: US)
  Receive Date: 20130125
  Receipt Date: 20130125
  Transmission Date: 20140127
  Serious: Yes (Death)
  Sender: FDA-Public Use
  Company Number: US-FRI-1000042053

PATIENT
  Age: 44 Year
  Sex: Male

DRUGS (5)
  1. CITALOPRAM [Suspect]
  2. MORPHINE [Suspect]
  3. OXYCODONE [Suspect]
  4. DICYCLOMINE [Suspect]
  5. TRAZODONE [Suspect]

REACTIONS (2)
  - Cardio-respiratory arrest [Fatal]
  - Drug abuse [Fatal]
